FAERS Safety Report 15772961 (Version 1)
Quarter: 2018Q4

REPORT INFORMATION
  Report Type: Spontaneous
  Country: DE (occurrence: DE)
  Receive Date: 20181228
  Receipt Date: 20181228
  Transmission Date: 20190205
  Serious: Yes (Hospitalization)
  Sender: FDA-Public Use
  Company Number: DE-BIOGEN-2018BI00540625

PATIENT
  Age: 57 Year
  Sex: Female

DRUGS (3)
  1. ZINBRYTA [Suspect]
     Active Substance: DACLIZUMAB
     Indication: PRODUCT USED FOR UNKNOWN INDICATION
     Route: 058
     Dates: start: 20170502, end: 20170731
  2. ZINBRYTA [Suspect]
     Active Substance: DACLIZUMAB
     Route: 058
     Dates: end: 201803
  3. ZINBRYTA [Suspect]
     Active Substance: DACLIZUMAB
     Route: 058
     Dates: start: 20170502, end: 201802

REACTIONS (4)
  - Lymphadenopathy [Recovered/Resolved]
  - Blood test abnormal [Not Recovered/Not Resolved]
  - Basedow^s disease [Recovered/Resolved with Sequelae]
  - Weight decreased [Recovered/Resolved]

NARRATIVE: CASE EVENT DATE: 20170825
